FAERS Safety Report 13739489 (Version 1)
Quarter: 2017Q3

REPORT INFORMATION
  Report Type: Spontaneous
  Country: BR (occurrence: BR)
  Receive Date: 20170711
  Receipt Date: 20170711
  Transmission Date: 20171127
  Serious: Yes (Death, Hospitalization)
  Sender: FDA-Public Use
  Company Number: PHHY2017BR099571

PATIENT
  Age: 39 Year
  Sex: Male

DRUGS (2)
  1. OXALIPLATIN. [Suspect]
     Active Substance: OXALIPLATIN
     Indication: ADENOCARCINOMA OF COLON
     Route: 065
     Dates: start: 20151221
  2. 5-FLUOROURACIL [Suspect]
     Active Substance: FLUOROURACIL
     Indication: ADENOCARCINOMA OF COLON
     Route: 065
     Dates: start: 20151221

REACTIONS (6)
  - Fatigue [Fatal]
  - Hepatic failure [Fatal]
  - Acute kidney injury [Fatal]
  - Malignant neoplasm progression [Fatal]
  - Confusional state [Fatal]
  - Adenocarcinoma of colon [Fatal]
